FAERS Safety Report 4394768-0 (Version None)
Quarter: 2004Q3

REPORT INFORMATION
  Report Type: 
  Country: None (occurrence: None)
  Receive Date: 20040707
  Receipt Date: 20040630
  Transmission Date: 20050211
  Serious: Yes (Death, Hospitalization)
  Sender: FDA-Public Use
  Company Number: 200412104GDS

PATIENT
  Age: 25 Year
  Sex: Female
  Weight: 49 kg

DRUGS (1)
  1. ASPIRIN [Suspect]
     Dosage: ORAL
     Route: 048

REACTIONS (20)
  - ABDOMINAL DISCOMFORT [None]
  - ABDOMINAL DISTENSION [None]
  - ABDOMINAL TENDERNESS [None]
  - ASCITES [None]
  - CANDIDIASIS [None]
  - DYSPNOEA [None]
  - FLUID RETENTION [None]
  - GASTROINTESTINAL DISORDER [None]
  - GASTROINTESTINAL PERFORATION [None]
  - HAEMORRHAGIC ASCITES [None]
  - HEART RATE INCREASED [None]
  - INFLAMMATION [None]
  - INTESTINAL INFARCTION [None]
  - OXYGEN SATURATION DECREASED [None]
  - PERITONITIS [None]
  - PURULENCE [None]
  - RASH ERYTHEMATOUS [None]
  - RASH PAPULAR [None]
  - SEPSIS [None]
  - SEPTIC SHOCK [None]
